FAERS Safety Report 5252809-2 (Version None)
Quarter: 2007Q1

REPORT INFORMATION
  Report Type: 
  Country: None (occurrence: None)
  Receive Date: 20070301
  Receipt Date: 20061207
  Transmission Date: 20070707
  Serious: No
  Sender: FDA-Public Use
  Company Number: US-GLAXOSMITHKLINE-A0630774A

PATIENT
  Age: 49 Year
  Sex: Female

DRUGS (4)
  1. LAMICTAL [Suspect]
     Indication: BIPOLAR DISORDER
     Dosage: 25MG ALTERNATE DAYS
     Route: 048
     Dates: start: 20061024
  2. DEPAKOTE [Suspect]
     Indication: BIPOLAR II DISORDER
     Dosage: 500MG PER DAY
     Route: 048
  3. WELLBUTRIN SR [Concomitant]
  4. LEXAPRO [Concomitant]

REACTIONS (3)
  - DRUG INTERACTION [None]
  - PHARMACEUTICAL PRODUCT COMPLAINT [None]
  - WEIGHT INCREASED [None]
